FAERS Safety Report 24934542 (Version 1)
Quarter: 2025Q1

REPORT INFORMATION
  Report Type: Spontaneous
  Country: US (occurrence: US)
  Receive Date: 20250206
  Receipt Date: 20250206
  Transmission Date: 20250409
  Serious: Yes (Death, Other)
  Sender: NOVO NORDISK
  Company Number: US-NOVOPROD-1360456

PATIENT
  Age: 85 Year
  Sex: Female

DRUGS (1)
  1. OZEMPIC [Suspect]
     Active Substance: SEMAGLUTIDE
     Indication: Type 2 diabetes mellitus
     Route: 058
     Dates: start: 202408

REACTIONS (6)
  - Pancreatic carcinoma [Fatal]
  - Biliary obstruction [Not Recovered/Not Resolved]
  - Malnutrition [Not Recovered/Not Resolved]
  - Gait inability [Not Recovered/Not Resolved]
  - Jaundice [Not Recovered/Not Resolved]
  - Weight decreased [Not Recovered/Not Resolved]

NARRATIVE: CASE EVENT DATE: 20240101
